FAERS Safety Report 9445437 (Version 1)
Quarter: 2013Q3

REPORT INFORMATION
  Report Type: Spontaneous
  Country: US (occurrence: US)
  Receive Date: 20130807
  Receipt Date: 20130807
  Transmission Date: 20140515
  Serious: No
  Sender: FDA-Public Use
  Company Number: US-PFIZER INC-2013228364

PATIENT
  Age: 69 Year
  Sex: Male
  Weight: 119 kg

DRUGS (4)
  1. ADVIL PM [Suspect]
     Indication: HEADACHE
     Dosage: 400 MG (TWO 200MG TABLET), AS NEEDED
     Route: 048
     Dates: start: 201212
  2. ADVIL PM [Suspect]
     Indication: PAIN
  3. IBUPROFEN [Suspect]
     Indication: HEADACHE
     Dosage: UNK
     Route: 048
  4. TYLENOL [Suspect]
     Indication: HEADACHE
     Dosage: UNK
     Route: 048

REACTIONS (1)
  - Drug ineffective [Unknown]
